FAERS Safety Report 4678094-8 (Version None)
Quarter: 2005Q2

REPORT INFORMATION
  Report Type: 
  Country: None (occurrence: None)
  Receive Date: 20050531
  Receipt Date: 20050531
  Transmission Date: 20051028
  Serious: Yes (Life-Threatening, Hospitalization, Disabling)
  Sender: FDA-Public Use
  Company Number: None

PATIENT
  Sex: Male
  Weight: 22.6799 kg

DRUGS (2)
  1. CLORAZEPATE    3.75 MG TAB    ABLE [Suspect]
     Indication: CONVULSION
     Dosage: 1/2 TAB   QID   OTHER
     Route: 050
     Dates: start: 20040128, end: 20050515
  2. KLONOPIN [Concomitant]

REACTIONS (3)
  - CONDITION AGGRAVATED [None]
  - CONVULSION [None]
  - PHARMACEUTICAL PRODUCT COMPLAINT [None]
